FAERS Safety Report 7789435-7 (Version None)
Quarter: 2011Q3

REPORT INFORMATION
  Report Type: 
  Country: None (occurrence: None)
  Receive Date: 20110930
  Receipt Date: 20110928
  Transmission Date: 20111222
  Serious: Yes (Death, Hospitalization)
  Sender: FDA-Public Use
  Company Number: RO-ABBOTT-11P-135-0858703-00

PATIENT
  Sex: Female
  Weight: 42 kg

DRUGS (3)
  1. ZEMPLAR [Suspect]
     Indication: HYPERPARATHYROIDISM SECONDARY
     Dosage: 2 MCG / WEEK, 1 MCG AT 3 DAYS
     Route: 048
     Dates: start: 20110221, end: 20110814
  2. URSODEOXICOLIC ACID [Concomitant]
     Indication: LIVER DISORDER
     Dosage: 250 MG/UNIT, 1G/DAY
     Route: 048
     Dates: start: 20030101, end: 20110814
  3. BISOPROLOL [Concomitant]
     Indication: CARDIAC FAILURE
     Route: 048
     Dates: start: 20100701, end: 20110814

REACTIONS (3)
  - CARDIO-RESPIRATORY ARREST [None]
  - GENERAL PHYSICAL HEALTH DETERIORATION [None]
  - PNEUMONIA [None]
